FAERS Safety Report 6816505-X (Version None)
Quarter: 2010Q3

REPORT INFORMATION
  Report Type: 
  Country: None (occurrence: None)
  Receive Date: 20100706
  Receipt Date: 20100303
  Transmission Date: 20110219
  Serious: Yes (Other)
  Sender: FDA-Public Use
  Company Number: US-ASTRAZENECA-2009SE20577

PATIENT
  Sex: Male

DRUGS (14)
  1. SEROQUEL [Suspect]
     Dosage: 50 MG TO 100 MG
     Route: 048
     Dates: start: 20030508
  2. AMLODIPINE BESYLATE [Concomitant]
     Indication: BLOOD PRESSURE
     Route: 048
     Dates: start: 20080812
  3. CITALOPRAM HYDROBROMIDE [Concomitant]
     Route: 048
     Dates: start: 20080812
  4. FOSINOPRIL SODIUM [Concomitant]
     Indication: CARDIAC DISORDER
     Route: 048
     Dates: start: 20080812
  5. FOSINOPRIL SODIUM [Concomitant]
     Indication: BLOOD PRESSURE
     Route: 048
     Dates: start: 20080812
  6. GABAPENTIN [Concomitant]
     Route: 048
     Dates: start: 20080812
  7. HYDROCHLOROTHIAZIDE [Concomitant]
     Indication: SWELLING
     Route: 048
     Dates: start: 20080812
  8. HYDROCHLOROTHIAZIDE [Concomitant]
     Indication: BLOOD PRESSURE
     Route: 048
     Dates: start: 20080812
  9. SIMVASTATIN [Concomitant]
     Indication: BLOOD CHOLESTEROL
     Route: 048
     Dates: start: 20080812
  10. AZITHROMYCIN [Concomitant]
     Route: 048
     Dates: start: 20030101
  11. ALLEGRA [Concomitant]
     Route: 048
     Dates: start: 20030101
  12. MIRTAZAPINE [Concomitant]
     Indication: SLEEP DISORDER
     Route: 048
     Dates: start: 20030508
  13. MIRTAZAPINE [Concomitant]
     Indication: DEPRESSION
     Route: 048
     Dates: start: 20030508
  14. MIRTAZAPINE [Concomitant]
     Indication: APPETITE DISORDER
     Route: 048
     Dates: start: 20030508

REACTIONS (2)
  - PERIPHERAL SENSORY NEUROPATHY [None]
  - TYPE 2 DIABETES MELLITUS [None]
